FAERS Safety Report 15209725 (Version 3)
Quarter: 2018Q3

REPORT INFORMATION
  Report Type: Report from Study
  Country: DE (occurrence: DE)
  Receive Date: 20180727
  Receipt Date: 20180728
  Transmission Date: 20181010
  Serious: Yes (Death, Hospitalization)
  Sender: FDA-Public Use
  Company Number: DE-TEVA-2018-DE-883675

PATIENT
  Age: 80 Year
  Sex: Male
  Weight: 67 kg

DRUGS (31)
  1. DEXAMETHASONE. [Concomitant]
     Active Substance: DEXAMETHASONE
     Indication: CHRONIC OBSTRUCTIVE PULMONARY DISEASE
     Dosage: 4 MILLIGRAM DAILY;  EVERY DAY
     Route: 048
     Dates: start: 20170201
  2. ALOXI [Concomitant]
     Active Substance: PALONOSETRON HYDROCHLORIDE
     Indication: PROPHYLAXIS
     Dosage: 250 MILLIGRAM DAILY;
     Route: 030
     Dates: start: 20170215
  3. FENISTIL [Concomitant]
     Active Substance: DIMETHINDENE
     Indication: PROPHYLAXIS
     Dosage: 4 MILLIGRAM DAILY;
     Route: 041
     Dates: start: 20170201
  4. DULCOLAX NOS [Concomitant]
     Active Substance: BISACODYL OR DOCUSATE SODIUM
     Route: 054
     Dates: start: 20170206
  5. NEPRESOL [Concomitant]
     Indication: HYPOTENSION
     Dosage: 25 MILLIGRAM DAILY;
     Route: 048
  6. RINGERLOESUNG [Concomitant]
     Indication: GASTROOESOPHAGEAL REFLUX DISEASE
     Route: 065
  7. ABRAXANE [Suspect]
     Active Substance: PACLITAXEL
     Indication: NON-SMALL CELL LUNG CANCER
     Dosage: 100 MG/M2 DAILY; DAILY DOSE: 100 MG/M2 MILLIGRAM(S)/SQ. METER EVERY DAY
     Route: 041
     Dates: start: 20170201, end: 20170201
  8. EMEND [Concomitant]
     Active Substance: APREPITANT
     Route: 048
     Dates: start: 20170222, end: 20170301
  9. SPIRIVA [Concomitant]
     Active Substance: TIOTROPIUM BROMIDE MONOHYDRATE
     Indication: CHRONIC OBSTRUCTIVE PULMONARY DISEASE
     Dosage: 18 MICROGRAM DAILY;
     Route: 055
  10. DULCOLAX NOS [Concomitant]
     Active Substance: BISACODYL OR DOCUSATE SODIUM
     Indication: PROPHYLAXIS
     Route: 065
  11. PANTOZOL [Concomitant]
     Active Substance: PANTOPRAZOLE SODIUM
     Indication: PROPHYLAXIS
     Dosage: DAILY DOSE: 40 MG MILLIGRAM(S) EVERY DAY
     Route: 048
     Dates: start: 20170215
  12. RANITIC [Concomitant]
     Active Substance: RANITIDINE HYDROCHLORIDE
     Indication: PROPHYLAXIS
     Dosage: 50 MILLIGRAM DAILY;
     Route: 041
     Dates: start: 20170201
  13. MOVICOL [Concomitant]
     Active Substance: POLYETHYLENE GLYCOL 3350\POTASSIUM CHLORIDE\SODIUM BICARBONATE\SODIUM CHLORIDE
     Indication: PROPHYLAXIS
     Dosage: 13.81 MILLIGRAM DAILY; DAILY DOSE: 13.81 MG MILLIGRAM(S) EVERY DAY
     Route: 048
  14. PANTOZOL [Concomitant]
     Active Substance: PANTOPRAZOLE SODIUM
     Indication: GASTROOESOPHAGEAL REFLUX DISEASE
     Dosage: 80 MILLIGRAM DAILY; DAILY DOSE: 80 MG MILLIGRAM(S) EVERY DAY
     Route: 048
     Dates: start: 20170119, end: 20170214
  15. TARGIN [Concomitant]
     Active Substance: NALOXONE HYDROCHLORIDE\OXYCODONE HYDROCHLORIDE
     Indication: CHEST PAIN
     Dosage: 40 MILLIGRAM DAILY; EVERY DAY
     Route: 048
     Dates: start: 20170116
  16. RINGERLOESUNG [Concomitant]
     Indication: PROPHYLAXIS
     Dosage: 1000 ML DAILY;
     Route: 048
  17. NOVALGIN (METAMIZOLE SODIUM) [Concomitant]
     Active Substance: METAMIZOLE SODIUM
     Indication: CHEST PAIN
     Dosage: 4 GRAM DAILY;
     Route: 048
     Dates: start: 20170116
  18. ENALAPRIL?RATIOPHARM [Concomitant]
     Active Substance: ENALAPRIL
     Indication: HYPOTENSION
     Dosage: 20 MILLIGRAM DAILY;
     Route: 048
  19. PASPERTIN [Concomitant]
     Indication: PROPHYLAXIS
     Dosage: 10 MILLIGRAM DAILY;
     Route: 041
     Dates: start: 20170201
  20. EMEND [Concomitant]
     Active Substance: APREPITANT
     Route: 048
     Dates: start: 20170222, end: 20170301
  21. DECORTIN [Concomitant]
     Active Substance: PREDNISONE
     Indication: PROPHYLAXIS
     Dosage: 100 MILLIGRAM DAILY; DAILY DOSE: 100 MG MILLIGRAM(S) EVERY WEEK
     Route: 041
     Dates: start: 20170201, end: 20170308
  22. KEVATRIL [Concomitant]
     Active Substance: GRANISETRON HYDROCHLORIDE
     Indication: PROPHYLAXIS
     Dosage: 3 MILLIGRAM DAILY; DAILY DOSE: 3 MG MILLIGRAM(S) EVERY WEEK
     Route: 041
     Dates: start: 20170201, end: 20170201
  23. LYRICA [Concomitant]
     Active Substance: PREGABALIN
     Indication: CHEST PAIN
     Dosage: 150 MILLIGRAM DAILY;  EVERY DAY
     Route: 048
  24. PANTOZOL [Concomitant]
     Active Substance: PANTOPRAZOLE SODIUM
     Indication: PROPHYLAXIS
     Dosage: 40 MILLIGRAM DAILY; EVERY DAY
     Route: 048
  25. LASIX [Concomitant]
     Active Substance: FUROSEMIDE
     Indication: OEDEMA PERIPHERAL
     Dosage: 40 MILLIGRAM DAILY;
     Route: 048
     Dates: start: 20170301
  26. RINGERLOESUNG [Concomitant]
     Dosage: DAILY DOSE: 1000 ML MILLILITRE(S) EVERY WEEK
     Route: 048
  27. CARBOPLATIN. [Suspect]
     Active Substance: CARBOPLATIN
     Indication: NON-SMALL CELL LUNG CANCER
     Dosage: 250MG
     Route: 041
     Dates: start: 20170201, end: 20170315
  28. ABRAXANE [Suspect]
     Active Substance: PACLITAXEL
     Dosage: DAILY DOSE: 100 MG/M2 MILLIGRAM(S)/SQ. METER EVERY DAY
     Route: 041
  29. AMITRIPTYLINE [Concomitant]
     Active Substance: AMITRIPTYLINE
     Indication: CHEST PAIN
     Dosage: 25 MILLIGRAM DAILY; EVERY DAY
     Route: 048
     Dates: start: 20170116
  30. SEVREDOL [Concomitant]
     Active Substance: MORPHINE
     Indication: CHEST PAIN
     Route: 048
     Dates: start: 20170116
  31. RINGERLOESUNG [Concomitant]
     Indication: GASTROOESOPHAGEAL REFLUX DISEASE

REACTIONS (6)
  - Vomiting [Recovered/Resolved]
  - Vomiting [Not Recovered/Not Resolved]
  - Constipation [Recovered/Resolved]
  - Nausea [Recovered/Resolved]
  - Non-small cell lung cancer [Fatal]
  - Nausea [Not Recovered/Not Resolved]

NARRATIVE: CASE EVENT DATE: 20170204
